FAERS Safety Report 10196395 (Version 1)
Quarter: 2014Q2

REPORT INFORMATION
  Report Type: Spontaneous
  Country: GB (occurrence: GB)
  Receive Date: 20140527
  Receipt Date: 20140527
  Transmission Date: 20141212
  Serious: Yes (Other)
  Sender: FDA-Public Use
  Company Number: GB-JNJFOC-20140510242

PATIENT
  Age: 7 Year
  Sex: Female

DRUGS (3)
  1. HALOPERIDOL [Suspect]
     Indication: AGITATION
     Route: 048
     Dates: start: 20140214, end: 20140502
  2. DICLOFENAC [Concomitant]
     Route: 065
  3. CHLORHEXIDINE [Concomitant]
     Indication: DENTAL CARE
     Route: 065

REACTIONS (1)
  - Application site ulcer [Not Recovered/Not Resolved]
